FAERS Safety Report 7634697-X (Version None)
Quarter: 2011Q3

REPORT INFORMATION
  Report Type: 
  Country: None (occurrence: None)
  Receive Date: 20110725
  Receipt Date: 20100111
  Transmission Date: 20111222
  Serious: Yes (Death, Hospitalization, Other)
  Sender: FDA-Public Use
  Company Number: US-BAYER-201011426NA

PATIENT
  Age: 74 Year
  Sex: Female
  Weight: 72 kg

DRUGS (10)
  1. TRASYLOL [Suspect]
     Dosage: 50 ML/HR, INFUSION DOSE
     Route: 042
     Dates: start: 20070626, end: 20070626
  2. SODIUM CHLORIDE [Concomitant]
     Dosage: UNK
     Route: 042
     Dates: start: 20070626, end: 20070626
  3. LACTATED RINGER'S [Concomitant]
     Dosage: UNK
     Route: 042
     Dates: start: 20070626, end: 20070626
  4. TRASYLOL [Suspect]
     Indication: AORTIC DISSECTION
     Dosage: 1 ML, TEAT DOSE
     Route: 042
     Dates: start: 20070626, end: 20070626
  5. TRASYLOL [Suspect]
     Dosage: 400 ML, LOADING DOSE
     Route: 042
     Dates: start: 20070626, end: 20070626
  6. SODIUM BICARBONATE [Concomitant]
     Dosage: 50 MG, UNK
     Route: 042
     Dates: start: 20070626, end: 20070626
  7. PLASMA [Concomitant]
     Dosage: UNK
     Route: 042
     Dates: start: 20070626
  8. COUMADIN [Concomitant]
  9. VERSED [Concomitant]
     Dosage: 5 MG, UNK
     Route: 042
     Dates: start: 20070626, end: 20070626
  10. PAVULON [Concomitant]
     Dosage: 5 MG, UNK
     Route: 042
     Dates: start: 20070626, end: 20070626

REACTIONS (16)
  - RENAL IMPAIRMENT [None]
  - UNEVALUABLE EVENT [None]
  - EMOTIONAL DISTRESS [None]
  - RENAL FAILURE [None]
  - ORGAN FAILURE [None]
  - DEPRESSION [None]
  - INJURY [None]
  - ANHEDONIA [None]
  - CEREBROVASCULAR ACCIDENT [None]
  - CARDIAC DISORDER [None]
  - RENAL INJURY [None]
  - STRESS [None]
  - FEAR [None]
  - PAIN [None]
  - DEATH [None]
  - ANXIETY [None]
